FAERS Safety Report 9209021 (Version 1)
Quarter: 2013Q1

REPORT INFORMATION
  Report Type: Spontaneous
  Country: US (occurrence: None)
  Receive Date: 20120817
  Receipt Date: 20120817
  Transmission Date: 20140127
  Serious: Yes (Other)
  Sender: FDA-Public Use
  Company Number: 201110815

PATIENT
  Sex: Female

DRUGS (4)
  1. LIORESAL INTRATHECAL(BACLOFEN INJECTION) 2000 MCG/ML [Suspect]
     Indication: MUSCLE SPASTICITY
     Route: 037
  2. DILAUDID [Concomitant]
  3. CLONIDINE [Concomitant]
  4. BUPVACAINE [Concomitant]

REACTIONS (2)
  - Pain [None]
  - Therapeutic response decreased [None]
